FAERS Safety Report 4993976-5 (Version None)
Quarter: 2006Q2

REPORT INFORMATION
  Report Type: 
  Country: None (occurrence: None)
  Receive Date: 20060505
  Receipt Date: 20060426
  Transmission Date: 20061013
  Serious: Yes (Hospitalization)
  Sender: FDA-Public Use
  Company Number: FR-GLAXOSMITHKLINE-B0422146A

PATIENT
  Age: 39 Year
  Sex: Male

DRUGS (11)
  1. AUGMENTIN '125' [Suspect]
     Indication: POLYTRAUMATISM
     Route: 042
     Dates: start: 20060305, end: 20060309
  2. GARDENAL [Suspect]
     Indication: POLYTRAUMATISM
     Route: 042
     Dates: start: 20060305, end: 20060310
  3. THIOPENTAL SODIUM [Suspect]
     Indication: POLYTRAUMATISM
     Route: 042
     Dates: start: 20060305, end: 20060309
  4. MOPRAL [Suspect]
     Indication: POLYTRAUMATISM
     Route: 042
     Dates: start: 20060305, end: 20060309
  5. MIDAZOLAM HCL [Concomitant]
     Indication: POLYTRAUMATISM
     Route: 042
     Dates: start: 20060305
  6. NIMBEX [Concomitant]
     Indication: POLYTRAUMATISM
     Route: 065
     Dates: start: 20060305
  7. NORADRENALINE [Concomitant]
     Indication: POLYTRAUMATISM
     Route: 065
     Dates: start: 20060305
  8. DOBUTAMINE HCL [Concomitant]
     Indication: POLYTRAUMATISM
     Route: 065
     Dates: start: 20060305
  9. SUFENTA [Concomitant]
     Indication: POLYTRAUMATISM
     Route: 065
     Dates: start: 20060305
  10. UMULINE [Concomitant]
     Indication: POLYTRAUMATISM
     Route: 065
     Dates: start: 20060305
  11. VOLUVEN [Concomitant]
     Indication: POLYTRAUMATISM
     Route: 065
     Dates: start: 20060305

REACTIONS (1)
  - PANCYTOPENIA [None]
